FAERS Safety Report 18581299 (Version 1)
Quarter: 2020Q4

REPORT INFORMATION
  Report Type: Spontaneous
  Country: FR (occurrence: FR)
  Receive Date: 20201204
  Receipt Date: 20201204
  Transmission Date: 20210114
  Serious: Yes (Hospitalization)
  Sender: FDA-Public Use
  Company Number: FR-MYLANLABS-2020M1098598

PATIENT
  Age: 51 Year
  Sex: Male
  Weight: 67 kg

DRUGS (9)
  1. DEXAMETHASONE. [Suspect]
     Active Substance: DEXAMETHASONE
     Indication: LYMPHOMA
     Dosage: 120 MILLIGRAM, CYCLE (40MG AT J2, J3, J4)
     Route: 042
     Dates: start: 20200805, end: 20200807
  2. ETOPOPHOS [Suspect]
     Active Substance: ETOPOSIDE PHOSPHATE
     Indication: LYMPHOMA
     Dosage: 543 MILLIGRAM, CYCLE (181MG AT J2, J3, J4)
     Route: 042
     Dates: start: 20200806, end: 20200807
  3. TIORFAN [Concomitant]
     Active Substance: RACECADOTRIL
     Dosage: UNK
  4. ALFUZOSINE                         /00975302/ [Concomitant]
     Active Substance: ALFUZOSIN HYDROCHLORIDE
     Dosage: UNK
  5. PRIMPERAN [Concomitant]
     Active Substance: METOCLOPRAMIDE HYDROCHLORIDE
     Dosage: UNK
  6. GRANOCYTE [Concomitant]
     Active Substance: LENOGRASTIM
     Dosage: UNK
  7. METHOTREXATE MYLAN [Suspect]
     Active Substance: METHOTREXATE SODIUM
     Indication: LYMPHOMA
     Dosage: 3620 MILLIGRAM, TOTAL (3620MG AT J1)
     Route: 042
     Dates: start: 20200804, end: 20200831
  8. IFOSFAMIDE EG [Suspect]
     Active Substance: IFOSFAMIDE
     Indication: LYMPHOMA
     Dosage: 8.13 GRAM, CYCLE (2.71G AT J2, J3, J4)
     Route: 042
     Dates: start: 20200805, end: 20200807
  9. VALACICLOVIR [Concomitant]
     Active Substance: VALACYCLOVIR HYDROCHLORIDE
     Dosage: UNK

REACTIONS (2)
  - Febrile bone marrow aplasia [Recovered/Resolved with Sequelae]
  - Pseudomonas infection [Recovered/Resolved with Sequelae]

NARRATIVE: CASE EVENT DATE: 20200814
